FAERS Safety Report 12835607 (Version 4)
Quarter: 2018Q1

REPORT INFORMATION
  Report Type: Report from Study
  Country: US (occurrence: US)
  Receive Date: 20161011
  Receipt Date: 20180207
  Transmission Date: 20180508
  Serious: Yes (Other)
  Sender: FDA-Public Use
  Company Number: PHEH2016US025980

PATIENT
  Age: 12 Year
  Sex: Female

DRUGS (4)
  1. AFINITOR [Suspect]
     Active Substance: EVEROLIMUS
     Dosage: 7.5 MG, QD (ON DAY 7)
     Route: 048
  2. AFINITOR [Suspect]
     Active Substance: EVEROLIMUS
     Dosage: 5 MG, QD (FOR 6 DAYS)
     Route: 048
  3. AFINITOR [Suspect]
     Active Substance: EVEROLIMUS
     Indication: ASTROCYTOMA, LOW GRADE
     Dosage: 5 MG, 5 MG FOR 13 DAYS, 2.5 MG ON DAY 14 , REPEAT EVERY 14 DAYS
     Route: 048
     Dates: start: 20110108
  4. AFINITOR [Suspect]
     Active Substance: EVEROLIMUS
     Dosage: 2.5 MG,  ON DAY 14
     Route: 048

REACTIONS (11)
  - Menstrual disorder [Unknown]
  - Stubbornness [Unknown]
  - Abnormal behaviour [Unknown]
  - Menorrhagia [Unknown]
  - Peripheral swelling [Unknown]
  - Epilepsy [Unknown]
  - Muscle spasms [Unknown]
  - Erythema [Unknown]
  - Influenza [Unknown]
  - Aggression [Unknown]
  - Pyrexia [Recovered/Resolved]

NARRATIVE: CASE EVENT DATE: 20171207
